FAERS Safety Report 22171753 (Version 1)
Quarter: 2023Q2

REPORT INFORMATION
  Report Type: Spontaneous
  Country: US (occurrence: US)
  Receive Date: 20230404
  Receipt Date: 20230404
  Transmission Date: 20230721
  Serious: No
  Sender: FDA-Public Use
  Company Number: US-GALDERMA-US2023003183

PATIENT

DRUGS (5)
  1. PROACTIV MD ADAPALENE ACNE TREATMENT [Suspect]
     Active Substance: ADAPALENE
     Indication: Acne
     Dosage: 1 DOSAGE FORM, QD BEFORE BED, PEA SIZE
     Route: 061
     Dates: start: 202301, end: 20230224
  2. Proactiv MD Ultra Gentle Cleanser [Concomitant]
     Indication: Acne
     Dosage: 1 DOSAGE FORM, BID, NICKEL SIZE
     Route: 061
     Dates: start: 202301
  3. Proactiv MD Ultra Gentle Cleanser [Concomitant]
     Dosage: 1 DOSAGE FORM, QD, NICKEL SIZE
     Route: 061
     Dates: end: 20230224
  4. Proactiv MD Ultra Hydrating Moisturizer [Concomitant]
     Indication: Acne
     Dosage: 1 DOSAGE FORM, BID, NICKEL SIZE
     Route: 061
     Dates: start: 202301
  5. Proactiv MD Ultra Hydrating Moisturizer [Concomitant]
     Dosage: 1 DOSAGE FORM, QD, NICKEL SIZE
     Route: 061
     Dates: end: 20230224

REACTIONS (4)
  - Skin burning sensation [Recovered/Resolved]
  - Acne [Recovered/Resolved]
  - Pain of skin [Recovered/Resolved]
  - Rash erythematous [Recovered/Resolved]

NARRATIVE: CASE EVENT DATE: 20230101
